FAERS Safety Report 7293982-4 (Version None)
Quarter: 2011Q1

REPORT INFORMATION
  Report Type: 
  Country: None (occurrence: None)
  Receive Date: 20110203
  Receipt Date: 20100917
  Transmission Date: 20110831
  Serious: Yes (Hospitalization)
  Sender: FDA-Public Use
  Company Number: GER/UKI/10/0015966

PATIENT
  Age: 40 Year
  Sex: Female

DRUGS (8)
  1. LISINOPRIL [Concomitant]
  2. ESTRADIOL [Concomitant]
  3. SERTRALINE (SERTRALINE) [Suspect]
     Indication: PRODUCT USED FOR UNKNOWN INDICATION
     Dosage: 50 MG, 1 IN 1 D, ORAL
     Route: 048
  4. ZOPICLONE (ZOPICLONE) [Concomitant]
  5. NICOTINE [Concomitant]
  6. FLUOXETINE [Suspect]
     Indication: PRODUCT USED FOR UNKNOWN INDICATION
     Dosage: 20 MG, 1 IN 1 D, ORAL
     Route: 048
     Dates: end: 20100709
  7. CYCLIZINE (CYCLIZINE) [Concomitant]
  8. SUMATRIPTAN SUCCINATE [Concomitant]

REACTIONS (1)
  - PANCREATITIS [None]
